FAERS Safety Report 5029409-2 (Version None)
Quarter: 2006Q2

REPORT INFORMATION
  Report Type: 
  Country: None (occurrence: None)
  Receive Date: 20060613
  Receipt Date: 20060531
  Transmission Date: 20061013
  Serious: Yes (Hospitalization)
  Sender: FDA-Public Use
  Company Number: 2006070772

PATIENT
  Age: 60 Year
  Sex: Male

DRUGS (6)
  1. METHYLPREDNISOLONE SODIUM SUCCINATE [Suspect]
     Indication: BRONCHITIS
     Dosage: 40 MG (40 MG, 1 IN 1 D), INTRAVENOU7S
     Route: 042
     Dates: start: 20060501, end: 20060502
  2. SYNTOPHYLLIN (AMINOPHYLLINE) [Suspect]
     Indication: ILL-DEFINED DISORDER
     Dosage: (ONE DOSE), INTRAVENOUS
     Route: 042
     Dates: start: 20060501
  3. FORMOTEROL (FORMOTEROL) [Concomitant]
  4. BUDESONIDE [Concomitant]
  5. IPARTROPIUM (IPARTROPIUM) [Concomitant]
  6. FUROSEMIDE [Concomitant]

REACTIONS (7)
  - CHILLS [None]
  - DYSPNOEA [None]
  - PHARMACEUTICAL PRODUCT COMPLAINT [None]
  - POOR QUALITY DRUG ADMINISTERED [None]
  - PYREXIA [None]
  - TACHYCARDIA [None]
  - TREMOR [None]
